FAERS Safety Report 13580839 (Version 3)
Quarter: 2019Q3

REPORT INFORMATION
  Report Type: Spontaneous
  Country: US (occurrence: US)
  Receive Date: 20170525
  Receipt Date: 20190717
  Transmission Date: 20191004
  Serious: No
  Sender: FDA-Public Use
  Company Number: US-BIOGEN-2017BI00348371

PATIENT
  Age: 59 Year
  Sex: Female

DRUGS (1)
  1. AVONEX [Suspect]
     Active Substance: INTERFERON BETA-1A
     Indication: MULTIPLE SCLEROSIS
     Route: 030
     Dates: start: 20120607, end: 20170407

REACTIONS (5)
  - Multiple sclerosis relapse [Unknown]
  - Injection site bruising [Recovered/Resolved]
  - Multiple sclerosis [Not Recovered/Not Resolved]
  - Drug ineffective [Not Recovered/Not Resolved]
  - Influenza like illness [Recovered/Resolved]

NARRATIVE: CASE EVENT DATE: 201612
